FAERS Safety Report 6122326-6 (Version None)
Quarter: 2009Q1

REPORT INFORMATION
  Report Type: 
  Country: None (occurrence: None)
  Receive Date: 20090318
  Receipt Date: 20090310
  Transmission Date: 20090719
  Serious: Yes (Hospitalization)
  Sender: FDA-Public Use
  Company Number: US-BIOGENIDEC-2009BI000829

PATIENT
  Age: 54 Year
  Sex: Male

DRUGS (2)
  1. AVONEX [Suspect]
     Indication: MULTIPLE SCLEROSIS
     Route: 030
     Dates: start: 20040326, end: 20050729
  2. AVONEX [Suspect]
     Route: 030
     Dates: start: 20050805

REACTIONS (3)
  - CARDIAC VALVE DISEASE [None]
  - NEOPLASM SKIN [None]
  - SINUS CONGESTION [None]
